FAERS Safety Report 16039513 (Version 2)
Quarter: 2019Q1

REPORT INFORMATION
  Report Type: Spontaneous
  Country: US (occurrence: US)
  Receive Date: 20190306
  Receipt Date: 20190311
  Transmission Date: 20190418
  Serious: No
  Sender: FDA-Public Use
  Company Number: US-TEVA-2019-US-1013724

PATIENT
  Age: 60 Year
  Sex: Female

DRUGS (2)
  1. FENTANYL. [Suspect]
     Active Substance: FENTANYL
     Indication: PROCEDURAL PAIN
     Dosage: 93.67 MICROGRAM DAILY; CONTINUOUS INTRATHECAL INFUSION VIA INTRATHECAL DRUG DELIVERY DEVICE IMPLANT
     Route: 037
  2. BUPIVACAINE. [Concomitant]
     Active Substance: BUPIVACAINE
     Indication: PROCEDURAL PAIN
     Dosage: CONTINUOUS INTRATHECAL INFUSION VIA INTRATHECAL DRUG DELIVERY DEVICE IMPLANT
     Route: 037

REACTIONS (1)
  - Hyperaesthesia [Recovering/Resolving]
